FAERS Safety Report 7459284-8 (Version None)
Quarter: 2011Q2

REPORT INFORMATION
  Report Type: 
  Country: None (occurrence: None)
  Receive Date: 20110505
  Receipt Date: 20110502
  Transmission Date: 20111010
  Serious: Yes (Hospitalization, Other)
  Sender: FDA-Public Use
  Company Number: US-PFIZER INC-2011038399

PATIENT
  Sex: Male

DRUGS (3)
  1. GLIMEPIRIDE [Concomitant]
     Indication: DIABETES MELLITUS
     Dosage: UNK
     Dates: start: 20020101
  2. CHANTIX [Suspect]
     Indication: SMOKING CESSATION THERAPY
     Dosage: CHANTIX STARTER PACK AND CHANTIX MONTHLY CONTINUING PACK 1MG
     Dates: start: 20100501, end: 20101001
  3. METFORMIN [Concomitant]
     Indication: DIABETES MELLITUS
     Dosage: UNK
     Dates: start: 20020101

REACTIONS (9)
  - PSYCHOTIC DISORDER [None]
  - HALLUCINATION, VISUAL [None]
  - DEPRESSION [None]
  - ANXIETY [None]
  - ANGER [None]
  - SUICIDAL IDEATION [None]
  - SYNCOPE [None]
  - HALLUCINATION, AUDITORY [None]
  - PARANOIA [None]
